FAERS Safety Report 8914432 (Version 3)
Quarter: 2012Q4

REPORT INFORMATION
  Report Type: 
  Country: GB (occurrence: GB)
  Receive Date: 20121119
  Receipt Date: 20121203
  Transmission Date: 20130627
  Serious: Yes (Hospitalization, Other)
  Sender: FDA-Public Use
  Company Number: GB-PFIZER INC-2012283601

PATIENT
  Age: 56 Year
  Sex: Male

DRUGS (2)
  1. CHAMPIX [Suspect]
     Dosage: UNK
  2. LACTULOSE [Concomitant]
     Dosage: UNK

REACTIONS (2)
  - Appendicitis [Unknown]
  - Pneumonia [Unknown]
